FAERS Safety Report 9961397 (Version 2)
Quarter: 2014Q4

REPORT INFORMATION
  Report Type: Spontaneous
  Country: SE (occurrence: SE)
  Receive Date: 20140305
  Receipt Date: 20141229
  Transmission Date: 20150529
  Serious: Yes (Hospitalization)
  Sender: FDA-Public Use
  Company Number: SE-TEVA-464054ISR

PATIENT
  Age: 35 Year
  Sex: Male

DRUGS (3)
  1. PROPAVAN 25 MG TABLET [Suspect]
     Active Substance: PROPIOMAZINE
     Dates: start: 20130101, end: 20130101
  2. IMOVANE [Suspect]
     Active Substance: ZOPICLONE
     Dates: start: 20130101, end: 20130101
  3. OXASCAND 10MG [Suspect]
     Active Substance: OXAZEPAM
     Dates: start: 20130101, end: 20130101

REACTIONS (4)
  - Suicidal ideation [Recovered/Resolved]
  - Toxicity to various agents [Recovered/Resolved]
  - Somnolence [Recovered/Resolved]
  - Psychomotor hyperactivity [Recovered/Resolved]

NARRATIVE: CASE EVENT DATE: 20130101
